FAERS Safety Report 16872726 (Version 4)
Quarter: 2019Q4

REPORT INFORMATION
  Report Type: Report from Study
  Country: FR (occurrence: FR)
  Receive Date: 20191001
  Receipt Date: 20191222
  Transmission Date: 20200122
  Serious: Yes (Hospitalization)
  Sender: FDA-Public Use
  Company Number: FR-EISAI MEDICAL RESEARCH-EC-2019-062757

PATIENT
  Age: 63 Year
  Sex: Male
  Weight: 72 kg

DRUGS (16)
  1. LENVATINIB [Suspect]
     Active Substance: LENVATINIB
     Dosage: BLINDED DOSE
     Route: 048
     Dates: start: 20191021
  2. ALDACTONE [Concomitant]
     Active Substance: SPIRONOLACTONE
  3. LEVOTHYROX [Concomitant]
     Active Substance: LEVOTHYROXINE
  4. VICTOZA [Concomitant]
     Active Substance: LIRAGLUTIDE
  5. BISOPROLOL [Concomitant]
     Active Substance: BISOPROLOL
  6. LENVATINIB [Suspect]
     Active Substance: LENVATINIB
     Indication: THYROID CANCER
     Dosage: BLINDED DOSE
     Route: 048
     Dates: start: 20180704, end: 20181107
  7. MAGNESIUM VITAMIN B6 [Concomitant]
  8. TOUJEO [Concomitant]
     Active Substance: INSULIN GLARGINE
  9. LENVATINIB [Suspect]
     Active Substance: LENVATINIB
     Dosage: BLINDED DOSE
     Route: 048
     Dates: start: 20190826, end: 20190923
  10. METFORMIN [Concomitant]
     Active Substance: METFORMIN HYDROCHLORIDE
  11. CALCIUM VITAMIN D3 [Concomitant]
  12. INNOHEP [Concomitant]
     Active Substance: TINZAPARIN SODIUM
  13. RAMIPRIL. [Concomitant]
     Active Substance: RAMIPRIL
  14. LENVATINIB [Suspect]
     Active Substance: LENVATINIB
     Dosage: BLINDED DOSE
     Route: 048
     Dates: start: 20181122, end: 20190613
  15. LENVATINIB [Suspect]
     Active Substance: LENVATINIB
     Dosage: BLINDED DOSE
     Route: 048
     Dates: start: 20190614, end: 20190825
  16. AMAREL [Concomitant]
     Active Substance: GLIMEPIRIDE

REACTIONS (1)
  - Ejection fraction decreased [Recovered/Resolved]

NARRATIVE: CASE EVENT DATE: 20190826
